FAERS Safety Report 20729327 (Version 1)
Quarter: 2022Q2

REPORT INFORMATION
  Report Type: Other
  Country: GB (occurrence: GB)
  Receive Date: 20220420
  Receipt Date: 20220420
  Transmission Date: 20220720
  Serious: Yes (Death, Hospitalization, Other)
  Sender: FDA-Public Use
  Company Number: None

PATIENT
  Age: 70 Year
  Sex: Male

DRUGS (28)
  1. PREDNISOLONE [Suspect]
     Active Substance: PREDNISOLONE
     Indication: Hyperthyroidism
     Dosage: 40 MILLIGRAM PER DAY (2518.3333 MG )
     Route: 065
     Dates: start: 20220125, end: 20220208
  2. PREDNISOLONE [Suspect]
     Active Substance: PREDNISOLONE
     Dosage: 30 MILLIGRAM PER DAY (1468.75 MG )
     Route: 065
     Dates: start: 20220208, end: 20220215
  3. PREDNISOLONE [Suspect]
     Active Substance: PREDNISOLONE
     Dosage: 25 MILLIGRAM PER DAY (1048.9584 MG )
     Route: 065
     Dates: start: 20220215, end: 20220222
  4. PREDNISOLONE [Suspect]
     Active Substance: PREDNISOLONE
     Dosage: 20 MILLIGRAM PER DAY (20.0 MG )
     Route: 065
     Dates: start: 20220222, end: 20220301
  5. PREDNISOLONE [Suspect]
     Active Substance: PREDNISOLONE
     Dosage: 15 MILLIGRAM PER DAY (419.375 MG )
     Route: 065
     Dates: start: 20220301, end: 20220308
  6. PREDNISOLONE [Suspect]
     Active Substance: PREDNISOLONE
     Dosage: 10 MILLIGRAM PER DAY (209.58333 MG )
     Route: 065
     Dates: start: 20220308, end: 20220315
  7. PREDNISOLONE [Suspect]
     Active Substance: PREDNISOLONE
     Dosage: 5 MILLIGRAM PER DAY (69.791664 MG )
     Route: 065
     Dates: start: 20220315, end: 20220322
  8. PREDNISOLONE [Suspect]
     Active Substance: PREDNISOLONE
     Dosage: 80 MILLIGRAM PER DAY (556.6667 MG )
     Route: 065
     Dates: start: 20220322, end: 20220325
  9. PREDNISOLONE [Suspect]
     Active Substance: PREDNISOLONE
     Dosage: 20 MILLIGRAM PER DAY (699.1667 MG )
     Route: 065
     Dates: start: 20220330, end: 20220410
  10. ANIDULAFUNGIN [Concomitant]
     Active Substance: ANIDULAFUNGIN
     Indication: Sepsis
     Dosage: 100 MILLIGRAM PER DAY
     Route: 041
     Dates: start: 20220328, end: 20220408
  11. APIXABAN [Concomitant]
     Active Substance: APIXABAN
     Indication: Product used for unknown indication
     Dosage: 10 MILLIGRAM PER DAY
     Route: 048
     Dates: start: 20220406
  12. ASPIRIN [Concomitant]
     Active Substance: ASPIRIN
     Indication: Product used for unknown indication
     Dosage: 75 MILLIGRAM PER DAY
     Route: 048
  13. ATORVASTATIN [Concomitant]
     Active Substance: ATORVASTATIN
     Indication: Product used for unknown indication
     Dosage: 40 MILLIGRAM PER DAY TAKEN AT NIGHT
     Route: 048
  14. ATRACURIUM [Concomitant]
     Active Substance: ATRACURIUM
     Indication: Product used for unknown indication
     Dosage: UNK, 250MG/25ML TITRATED TO REQUIREMENTS
     Route: 041
  15. ALFENTANIL [Concomitant]
     Active Substance: ALFENTANIL
     Indication: Product used for unknown indication
     Dosage: UNK, 25MG/50ML  TITRATED TO REQUIREMENTS
     Route: 041
     Dates: start: 20220328, end: 20220403
  16. CHLORHEXIDINE [Concomitant]
     Active Substance: CHLORHEXIDINE
     Indication: Product used for unknown indication
     Dosage: 2 DOSAGE FORM PER DAY
     Route: 061
  17. CARBIMAZOLE [Concomitant]
     Active Substance: CARBIMAZOLE
     Indication: Product used for unknown indication
     Dosage: 10 MILLIGRAM, HAD BEEN ON 20MG TWICE DAILY. REDUCED TO STOP WITH STEROIDS
     Route: 048
     Dates: start: 20220125, end: 20220311
  18. CHLORHEXIDINE GLUCONATE [Concomitant]
     Active Substance: CHLORHEXIDINE GLUCONATE
     Indication: Product used for unknown indication
     Dosage: 80 MILLILITER PER DAY
     Route: 061
  19. DRONEDARONE [Concomitant]
     Active Substance: DRONEDARONE
     Indication: Product used for unknown indication
     Dosage: 800 MILLIGRAM PER DAY
     Route: 048
  20. ENOXAPARIN SODIUM [Concomitant]
     Active Substance: ENOXAPARIN SODIUM
     Indication: Product used for unknown indication
     Dosage: 40 MILLIGRAM PER DAY, 40MG/0.4ML
     Route: 058
     Dates: start: 20220318, end: 20220405
  21. FORCEVAL JUNIOR [Concomitant]
     Indication: Product used for unknown indication
     Dosage: 1 DOSAGE FORM PER DAY
     Route: 048
  22. MEROPENEM [Concomitant]
     Active Substance: MEROPENEM
     Indication: Product used for unknown indication
     Dosage: 1 GRAM, EVERY 8 HOURS
     Route: 040
     Dates: start: 20220327, end: 20220330
  23. NEBIVOLOL [Concomitant]
     Active Substance: NEBIVOLOL
     Indication: Product used for unknown indication
     Dosage: 1.25 MILLIGRAM PER DAY
     Route: 048
  24. NOREPINEPHRINE [Concomitant]
     Active Substance: NOREPINEPHRINE
     Indication: Product used for unknown indication
     Dosage: UNK, 4MG/50ML  TITRATED TO REQUIREMENTS
     Route: 041
     Dates: start: 20220328, end: 20220403
  25. OMEPRAZOLE [Concomitant]
     Active Substance: OMEPRAZOLE
     Indication: Product used for unknown indication
     Dosage: 20 MILLIGRAM PER DAY
     Route: 048
  26. PRONTODERM [POLIHEXANIDE] [Concomitant]
     Indication: Product used for unknown indication
     Dosage: 3 DOSAGE FORM PER DAY
     Route: 061
     Dates: start: 20220318
  27. PROPYLTHIOURACIL [Concomitant]
     Active Substance: PROPYLTHIOURACIL
     Indication: Product used for unknown indication
     Dosage: 200 MILLIGRAM PER DAY
     Route: 048
     Dates: start: 20220318, end: 20220329
  28. PROPYLTHIOURACIL [Concomitant]
     Active Substance: PROPYLTHIOURACIL
     Dosage: 300 MILLIGRAM PER DAY
     Route: 048
     Dates: start: 20220329

REACTIONS (2)
  - Pneumocystis jirovecii pneumonia [Fatal]
  - Immunosuppression [Fatal]

NARRATIVE: CASE EVENT DATE: 20220410
